FAERS Safety Report 6111628-5 (Version None)
Quarter: 2009Q1

REPORT INFORMATION
  Report Type: 
  Country: None (occurrence: None)
  Receive Date: 20090310
  Receipt Date: 20090310
  Transmission Date: 20090719
  Serious: No
  Sender: FDA-Public Use
  Company Number: None

PATIENT
  Age: 45 Year
  Sex: Female
  Weight: 72.5755 kg

DRUGS (3)
  1. BUPROPION HCL [Suspect]
     Indication: DEPRESSION
     Dosage: 1 PILL TWICE A DAY PO
     Route: 046
     Dates: start: 20080726, end: 20090304
  2. BUPROPION HCL [Suspect]
     Indication: SMOKING CESSATION THERAPY
     Dosage: 1 PILL TWICE A DAY PO
     Route: 046
     Dates: start: 20080726, end: 20090304
  3. BUPROPION HCL [Suspect]

REACTIONS (5)
  - ABDOMINAL DISTENSION [None]
  - IRRITABILITY [None]
  - PRODUCT QUALITY ISSUE [None]
  - VISION BLURRED [None]
  - WEIGHT INCREASED [None]
